FAERS Safety Report 5663196-X (Version None)
Quarter: 2008Q1

REPORT INFORMATION
  Report Type: 
  Country: None (occurrence: None)
  Receive Date: 20080310
  Receipt Date: 20080221
  Transmission Date: 20080703
  Serious: Yes (Other)
  Sender: FDA-Public Use
  Company Number: 8030054

PATIENT
  Sex: Male

DRUGS (4)
  1. KEPPRA [Suspect]
     Indication: BIPOLAR DISORDER
     Dosage: 1000 MG /D TRP
     Route: 064
     Dates: start: 20061005, end: 20070617
  2. VITAMIN TAB [Concomitant]
  3. PROZAC [Concomitant]
  4. SYNTHROID [Concomitant]

REACTIONS (3)
  - CHILD MALTREATMENT SYNDROME [None]
  - DRUG EXPOSURE DURING PREGNANCY [None]
  - HEAD INJURY [None]
